FAERS Safety Report 4425426-1 (Version None)
Quarter: 2004Q3

REPORT INFORMATION
  Report Type: 
  Country: None (occurrence: None)
  Receive Date: 20040719
  Receipt Date: 20030617
  Transmission Date: 20050211
  Serious: Yes (Hospitalization)
  Sender: FDA-Public Use
  Company Number: 174546

PATIENT
  Age: 26 Year
  Sex: Female

DRUGS (1)
  1. AVONEX [Suspect]
     Indication: MULTIPLE SCLEROSIS
     Dates: start: 20000301

REACTIONS (8)
  - BLINDNESS TRANSIENT [None]
  - COLOUR BLINDNESS [None]
  - DYSARTHRIA [None]
  - HYPOAESTHESIA [None]
  - MALAISE [None]
  - MULTIPLE SCLEROSIS RELAPSE [None]
  - OPTIC NEURITIS [None]
  - VISUAL ACUITY REDUCED [None]
